FAERS Safety Report 6971673-4 (Version None)
Quarter: 2010Q3

REPORT INFORMATION
  Report Type: 
  Country: None (occurrence: None)
  Receive Date: 20100908
  Receipt Date: 20100831
  Transmission Date: 20110219
  Serious: Yes (Disabling)
  Sender: FDA-Public Use
  Company Number: PHHY2010US29600

PATIENT
  Sex: Male

DRUGS (4)
  1. EXTAVIA [Suspect]
     Indication: MULTIPLE SCLEROSIS
     Dosage: 0.25 MG, QOD
     Route: 058
     Dates: start: 20100313
  2. DEPAKOTE [Concomitant]
     Indication: EPILEPSY
     Dosage: UNK,UNK
  3. ZOLOFT [Concomitant]
     Indication: DEPRESSION
     Dosage: UNK,UNK
  4. DOANS [Concomitant]
     Dosage: UNK

REACTIONS (4)
  - FATIGUE [None]
  - FRUSTRATION [None]
  - IMPAIRED DRIVING ABILITY [None]
  - INCONTINENCE [None]
